FAERS Safety Report 5312879-X (Version None)
Quarter: 2007Q2

REPORT INFORMATION
  Report Type: 
  Country: None (occurrence: None)
  Receive Date: 20070430
  Receipt Date: 20070418
  Transmission Date: 20071010
  Serious: Yes (Other)
  Sender: FDA-Public Use
  Company Number: FR-PFIZER INC-2007031986

PATIENT
  Age: 47 Year
  Sex: Female

DRUGS (4)
  1. LYRICA [Suspect]
     Indication: CERVICAL ROOT PAIN
     Dates: start: 20070129, end: 20070201
  2. PAROXETINE HYDROCHLORIDE [Concomitant]
  3. TRAMADOL HCL [Concomitant]
  4. HAVLANE [Concomitant]

REACTIONS (1)
  - INTESTINAL OBSTRUCTION [None]
